FAERS Safety Report 8071461-4 (Version None)
Quarter: 2012Q1

REPORT INFORMATION
  Report Type: 
  Country: None (occurrence: None)
  Receive Date: 20120125
  Receipt Date: 20120123
  Transmission Date: 20120608
  Serious: Yes (Death)
  Sender: FDA-Public Use
  Company Number: US-AMGEN-USASP2011036054

PATIENT
  Age: 78 Year
  Sex: Female
  Weight: 46 kg

DRUGS (11)
  1. NPLATE [Suspect]
     Indication: IDIOPATHIC THROMBOCYTOPENIC PURPURA
     Dosage: 2 MUG/KG, QWK
     Dates: start: 20110316, end: 20110413
  2. CORTICOSTEROIDS [Concomitant]
  3. DECADRON [Concomitant]
     Indication: DEHYDRATION
     Dosage: UNK UNK, PRN
     Route: 042
  4. BACTRIM DS [Concomitant]
     Route: 048
  5. NPLATE [Suspect]
  6. NPLATE [Suspect]
  7. KLOR-CON [Concomitant]
     Dosage: 10 MEQ, BID
     Route: 048
  8. ZOFRAN [Concomitant]
     Indication: ANTIEMETIC SUPPORTIVE CARE
  9. SODIUM CHLORIDE [Concomitant]
     Indication: DEHYDRATION
     Dosage: UNK
     Route: 042
  10. ATIVAN [Concomitant]
     Dosage: UNK
     Route: 042
  11. PREDNISONE TAB [Concomitant]
     Dosage: 20 MG, UNK
     Route: 048

REACTIONS (2)
  - MONOCYTOSIS [None]
  - PANCREATIC CARCINOMA [None]
